FAERS Safety Report 5236699-X (Version None)
Quarter: 2007Q1

REPORT INFORMATION
  Report Type: 
  Country: None (occurrence: None)
  Receive Date: 20070209
  Receipt Date: 20070125
  Transmission Date: 20070707
  Serious: Yes (Hospitalization)
  Sender: FDA-Public Use
  Company Number: S07-FRA-00532-01

PATIENT
  Age: 60 Year
  Sex: Male

DRUGS (12)
  1. CITALOPRAM HYDROBROMIDE [Suspect]
     Indication: DEPRESSION
     Dosage: 20 MG QD PO
     Route: 048
     Dates: start: 20061111
  2. SEROPRAM (CITALOPRAM HYRDOBROMIDE) [Suspect]
     Indication: DEPRESSION
  3. APPROVEL (IRBESARTAN) [Suspect]
     Indication: ESSENTIAL HYPERTENSION
     Dosage: 300 MG QD PO
     Route: 048
     Dates: start: 20061111, end: 20061116
  4. LASIX [Suspect]
     Indication: ESSENTIAL HYPERTENSION
     Dosage: 20 MG QD PO
     Route: 048
     Dates: start: 20061111, end: 20061120
  5. ALLOPURINOL [Concomitant]
  6. GLUCOPHAGE [Concomitant]
  7. LEXOMIL (BROMAZEPAM) [Concomitant]
  8. PANTOPRAZOLE SODIUM [Concomitant]
  9. FLECAINIDE ACETATE [Concomitant]
  10. PERFALGAN (PARACETAMOL) [Concomitant]
  11. MEPRONIZINE [Concomitant]
  12. PREVISCAN (PENTOXIFYLLINE) [Concomitant]

REACTIONS (8)
  - DEHYDRATION [None]
  - HYPERKALAEMIA [None]
  - HYPONATRAEMIA [None]
  - INTERNATIONAL NORMALISED RATIO INCREASED [None]
  - METABOLIC ACIDOSIS [None]
  - RENAL CYST [None]
  - RENAL FAILURE ACUTE [None]
  - VOMITING [None]
